FAERS Safety Report 10006145 (Version 2)
Quarter: 2014Q2

REPORT INFORMATION
  Report Type: Spontaneous
  Country: IT (occurrence: IT)
  Receive Date: 20140313
  Receipt Date: 20140408
  Transmission Date: 20141212
  Serious: Yes (Hospitalization)
  Sender: FDA-Public Use
  Company Number: IT-TEVA-467819ISR

PATIENT
  Age: 66 Year
  Sex: Male

DRUGS (9)
  1. IRBESARTAN [Suspect]
     Indication: HYPERTENSION
     Dosage: 300 MG DAILY
     Route: 048
     Dates: start: 20130101, end: 20140210
  2. SPIRONOLACTONE [Suspect]
     Indication: HYPERTENSION
     Dosage: 50 MG DAILY
     Route: 048
     Dates: start: 20130101, end: 20140210
  3. LASIX - 25 MG COMPRESSE [Concomitant]
     Indication: PRODUCT USED FOR UNKNOWN INDICATION
     Dosage: 25 MG
     Route: 048
  4. CARDIOASPIRIN - 100 MG COMPRESSE GASTRORESISTENTI [Concomitant]
     Indication: PRODUCT USED FOR UNKNOWN INDICATION
     Dosage: 1 DF,GASTRO-RESISTANT TABLET
     Route: 048
  5. DILATREND - 6.25 MG COMPRESSE [Concomitant]
     Indication: PRODUCT USED FOR UNKNOWN INDICATION
     Dosage: 1 DF
     Route: 048
  6. ATORVASTATIN [Concomitant]
     Indication: PRODUCT USED FOR UNKNOWN INDICATION
     Dosage: 20 MG
     Route: 048
  7. RANITIDINE [Concomitant]
     Indication: PRODUCT USED FOR UNKNOWN INDICATION
     Dosage: 150 MG
     Route: 048
  8. TRIMETAZIDINE [Concomitant]
     Indication: PRODUCT USED FOR UNKNOWN INDICATION
     Route: 048
  9. HYDROCHLOROTHIAZIDE [Concomitant]
     Indication: PRODUCT USED FOR UNKNOWN INDICATION
     Dosage: 35 MG
     Route: 048

REACTIONS (5)
  - Abdominal pain upper [Unknown]
  - Angina unstable [Unknown]
  - Cold sweat [Unknown]
  - Nausea [Unknown]
  - Vomiting [Unknown]
